FAERS Safety Report 7825978-5 (Version None)
Quarter: 2011Q4

REPORT INFORMATION
  Report Type: 
  Country: None (occurrence: None)
  Receive Date: 20111019
  Receipt Date: 20111010
  Transmission Date: 20120403
  Serious: Yes (Other)
  Sender: FDA-Public Use
  Company Number: JP-ROCHE-1004141

PATIENT

DRUGS (1)
  1. ACTEMRA [Suspect]
     Indication: RHEUMATOID ARTHRITIS

REACTIONS (18)
  - RASH [None]
  - BREAST CANCER [None]
  - ANAPHYLACTIC REACTION [None]
  - ACUTE RESPIRATORY FAILURE [None]
  - MYOCARDIAL INFARCTION [None]
  - SKIN ULCER [None]
  - PANCREATITIS NECROTISING [None]
  - GASTROINTESTINAL PERFORATION [None]
  - SCLERODERMA [None]
  - CEREBRAL HAEMORRHAGE [None]
  - SKIN INFECTION [None]
  - OESOPHAGEAL CANDIDIASIS [None]
  - CERVIX CARCINOMA [None]
  - CHEST PAIN [None]
  - PNEUMONIA [None]
  - GASTROINTESTINAL HAEMORRHAGE [None]
  - BLOOD BILIRUBIN INCREASED [None]
  - PANCYTOPENIA [None]
